FAERS Safety Report 5875034-0 (Version None)
Quarter: 2008Q3

REPORT INFORMATION
  Report Type: 
  Country: None (occurrence: None)
  Receive Date: 20080904
  Receipt Date: 20080819
  Transmission Date: 20090109
  Serious: Yes (Other)
  Sender: FDA-Public Use
  Company Number: 032538

PATIENT
  Age: 37 Year
  Sex: Female

DRUGS (1)
  1. TRI-SPRINTEC [Suspect]
     Dosage: 1 TABLET, QD, ORAL
     Route: 048
     Dates: start: 20050101, end: 20080801

REACTIONS (1)
  - URTICARIA [None]
